FAERS Safety Report 6114103-7 (Version None)
Quarter: 2009Q1

REPORT INFORMATION
  Report Type: 
  Country: None (occurrence: None)
  Receive Date: 20090312
  Receipt Date: 20080602
  Transmission Date: 20090719
  Serious: No
  Sender: FDA-Public Use
  Company Number: US-ABBOTT-08P-163-0456016-00

PATIENT
  Sex: Male
  Weight: 95.34 kg

DRUGS (4)
  1. DEPAKOTE [Suspect]
     Indication: MIGRAINE
     Route: 048
     Dates: end: 20070101
  2. DEPAKOTE [Suspect]
     Route: 048
     Dates: start: 20070101, end: 20070101
  3. DEPAKOTE ER [Suspect]
     Indication: MIGRAINE
     Route: 048
     Dates: start: 20070101
  4. TOPIRAMATE [Concomitant]
     Indication: MIGRAINE
     Dates: start: 20070101, end: 20070101

REACTIONS (1)
  - MIGRAINE [None]
